FAERS Safety Report 8811867 (Version 1)
Quarter: 2012Q4

REPORT INFORMATION
  Report Type: 
  Country: US (occurrence: US)
  Receive Date: 20120927
  Receipt Date: 20120927
  Transmission Date: 20130627
  Serious: No
  Sender: FDA-Public Use
  Company Number: US-MUTUAL PHARMACEUTICAL COMPANY, INC.-SFTM20120015

PATIENT
  Age: 9 None
  Sex: Female

DRUGS (1)
  1. SULFAMETHOXAZOLE AND TRIMETHOPRIM DS [Suspect]
     Indication: UTI
     Route: 065

REACTIONS (5)
  - Rash [Unknown]
  - Stevens-Johnson syndrome [Unknown]
  - Abnormal behaviour [Unknown]
  - Disorientation [Unknown]
  - Anxiety [Unknown]
